FAERS Safety Report 4710824-9 (Version None)
Quarter: 2005Q3

REPORT INFORMATION
  Report Type: 
  Country: None (occurrence: None)
  Receive Date: 20050706
  Receipt Date: 20050706
  Transmission Date: 20060218
  Serious: Yes (Hospitalization)
  Sender: FDA-Public Use
  Company Number: None

PATIENT
  Age: 65 Year
  Sex: Female
  Weight: 83.9154 kg

DRUGS (6)
  1. CEFADROXIL [Suspect]
     Indication: BRONCHIOLITIS
     Dosage: 500 MG ORAL
     Route: 048
     Dates: start: 20050419, end: 20050420
  2. AMITRIPTYLINE HCL [Concomitant]
  3. SYNTHROID [Concomitant]
  4. SYMABALTA [Concomitant]
  5. OXYCODONE HCL [Concomitant]
  6. PREVACID [Concomitant]

REACTIONS (2)
  - BURNING SENSATION [None]
  - CHEST PAIN [None]
